FAERS Safety Report 11616999 (Version 6)
Quarter: 2016Q4

REPORT INFORMATION
  Report Type: Spontaneous
  Country: US (occurrence: US)
  Receive Date: 20151009
  Receipt Date: 20161227
  Transmission Date: 20170206
  Serious: Yes (Other)
  Sender: FDA-Public Use
  Company Number: US-BAYER-2015-435927

PATIENT
  Age: 48 Year
  Sex: Female
  Weight: 61.18 kg

DRUGS (13)
  1. IMITREX [Concomitant]
     Active Substance: SUMATRIPTAN SUCCINATE
     Indication: MIGRAINE
  2. CIPRO [Suspect]
     Active Substance: CIPROFLOXACIN HYDROCHLORIDE
     Indication: URINARY TRACT INFECTION
     Dosage: 500 MG, QD
     Route: 048
     Dates: start: 20140606, end: 201406
  3. LEVAQUIN [Suspect]
     Active Substance: LEVOFLOXACIN
     Dosage: 500 MG, UNK
     Dates: start: 19981217
  4. SULFAMETHOXAZOLE/TRIMETHOPRIM [Concomitant]
     Active Substance: SULFAMETHOXAZOLE\TRIMETHOPRIM
     Dosage: UNK
  5. ATROVENT [Concomitant]
     Active Substance: IPRATROPIUM BROMIDE
     Dosage: UNK
  6. IMITREX [Concomitant]
     Active Substance: SUMATRIPTAN SUCCINATE
     Indication: HEADACHE
  7. CIPRO [Suspect]
     Active Substance: CIPROFLOXACIN HYDROCHLORIDE
     Indication: URINARY TRACT INFECTION
     Dosage: 500 MG, UNK
     Dates: start: 20051201, end: 20130505
  8. CEPHALEXIN. [Concomitant]
     Active Substance: CEPHALEXIN
     Dosage: 500 MG, UNK
  9. CIPRO [Suspect]
     Active Substance: CIPROFLOXACIN HYDROCHLORIDE
     Indication: URINARY TRACT INFECTION
     Dosage: 500 MG, UNK
     Route: 048
     Dates: start: 19960822
  10. LEVAQUIN [Suspect]
     Active Substance: LEVOFLOXACIN
     Dosage: 250 MG, UNK
     Dates: start: 20050502, end: 20050509
  11. ALBUTEROL. [Concomitant]
     Active Substance: ALBUTEROL
     Dosage: UNK
  12. AVELOX [Suspect]
     Active Substance: MOXIFLOXACIN HYDROCHLORIDE
     Indication: ACUTE SINUSITIS
     Dosage: 400 MG, UNK
     Route: 048
     Dates: start: 20051129, end: 20130502
  13. LEVAQUIN [Suspect]
     Active Substance: LEVOFLOXACIN
     Dosage: 500 MG, UNK
     Dates: start: 20021022, end: 20021029

REACTIONS (35)
  - Neuropathy peripheral [None]
  - Emotional distress [None]
  - Injury [None]
  - Dysuria [None]
  - Wheezing [None]
  - Rash [None]
  - Renal cyst [None]
  - Urinary tract infection [None]
  - Pneumonia [None]
  - Pain [None]
  - Musculoskeletal stiffness [None]
  - Dyspnoea [None]
  - Flank pain [None]
  - Bladder pain [None]
  - Haematuria [None]
  - Hyperlipidaemia [None]
  - Hypothyroidism [None]
  - Chest pain [None]
  - Abdominal distension [None]
  - Tobacco abuse [None]
  - Osteoarthritis [None]
  - Abdominal pain [None]
  - Dyspnoea exertional [None]
  - Intervertebral disc degeneration [None]
  - Arthralgia [None]
  - Tenderness [None]
  - Palpitations [None]
  - Swelling [None]
  - Headache [None]
  - Cystitis interstitial [None]
  - Irritable bowel syndrome [None]
  - Migraine [None]
  - Vomiting [None]
  - Nasal congestion [None]
  - Cough [None]

NARRATIVE: CASE EVENT DATE: 200512
